FAERS Safety Report 24525057 (Version 3)
Quarter: 2024Q4

REPORT INFORMATION
  Report Type: Spontaneous
  Country: NL (occurrence: NL)
  Receive Date: 20241019
  Receipt Date: 20241118
  Transmission Date: 20250114
  Serious: Yes (Life-Threatening, Hospitalization, Other)
  Sender: CELLTRION
  Company Number: NL-SANDOZ-SDZ2024NL040649

PATIENT

DRUGS (4)
  1. TRASTUZUMAB [Suspect]
     Active Substance: TRASTUZUMAB
     Indication: Neoplasm
     Dosage: NEO-ADJUVANT THERAPY
     Route: 065
  2. TRASTUZUMAB [Suspect]
     Active Substance: TRASTUZUMAB
     Indication: Neoadjuvant therapy
  3. DOXORUBICIN [Suspect]
     Active Substance: DOXORUBICIN
     Indication: Neoplasm
     Dosage: 240 MG/M2; 240 MILLIGRAM/M^2; NEO-ADJUVANT THERAPY
     Route: 065
  4. DOXORUBICIN [Suspect]
     Active Substance: DOXORUBICIN
     Indication: Neoadjuvant therapy

REACTIONS (3)
  - Cardiotoxicity [Unknown]
  - Cardiogenic shock [Recovering/Resolving]
  - Cardiac failure congestive [Recovering/Resolving]
